FAERS Safety Report 11135543 (Version 1)
Quarter: 2015Q2

REPORT INFORMATION
  Report Type: Spontaneous
  Country: US (occurrence: None)
  Receive Date: 20150522
  Receipt Date: 20150522
  Transmission Date: 20150821
  Serious: No
  Sender: FDA-Public Use
  Company Number: None

PATIENT
  Age: 8 Year
  Sex: Male

DRUGS (1)
  1. NEUPOGEN [Suspect]
     Active Substance: FILGRASTIM
     Indication: BURKITT^S LYMPHOMA STAGE IV
     Dosage: 105MCG DAILY FOR 10 DAYS, SUBCUTANEOUSLY
     Route: 058
     Dates: start: 20141203

REACTIONS (1)
  - Death [None]

NARRATIVE: CASE EVENT DATE: 20150518
